FAERS Safety Report 5162061-4 (Version None)
Quarter: 2006Q4

REPORT INFORMATION
  Report Type: 
  Country: None (occurrence: None)
  Receive Date: 20061121
  Receipt Date: 20061023
  Transmission Date: 20070319
  Serious: Yes (Disabling, Congenital Anomaly)
  Sender: FDA-Public Use
  Company Number: A02200602696

PATIENT
  Age: 1 Day
  Sex: Male
  Weight: 3.48 kg

DRUGS (12)
  1. MYOLASTAN (TETRAZEPAM) [Suspect]
     Indication: CONVERSION DISORDER
     Dosage: 50 MG
     Route: 064
  2. MYOLASTAN (TETRAZEPAM) [Suspect]
     Indication: PARAPLEGIA
     Dosage: 50 MG
     Route: 064
  3. TRAMADOL HCL [Suspect]
     Indication: CONVERSION DISORDER
     Dosage: 200 MG BID
     Route: 064
  4. TRAMADOL HCL [Suspect]
     Indication: PARAPLEGIA
     Dosage: 200 MG BID
     Route: 064
  5. TRANXENE [Suspect]
     Indication: CONVERSION DISORDER
     Dosage: 10 MG BID
     Route: 064
  6. TRANXENE [Suspect]
     Indication: PARAPLEGIA
     Dosage: 10 MG BID
     Route: 064
  7. EFFEXOR [Suspect]
     Indication: CONVERSION DISORDER
     Dosage: 125 MG
  8. EFFEXOR [Suspect]
     Indication: PARAPLEGIA
     Dosage: 125 MG
  9. ZOLPIDEM TARTRATE [Suspect]
     Indication: CONVERSION DISORDER
     Dosage: 10 MG OD
  10. ZOLPIDEM TARTRATE [Suspect]
     Indication: PARAPLEGIA
     Dosage: 10 MG OD
  11. VALIUM [Concomitant]
  12. ATARAX [Concomitant]

REACTIONS (2)
  - DRUG EXPOSURE DURING PREGNANCY [None]
  - TALIPES [None]
